FAERS Safety Report 15355716 (Version 1)
Quarter: 2018Q3

REPORT INFORMATION
  Report Type: Report from Study
  Country: IT (occurrence: IT)
  Receive Date: 20180906
  Receipt Date: 20180906
  Transmission Date: 20181010
  Serious: Yes (Other)
  Sender: FDA-Public Use
  Company Number: IT-TEVA-2018-IT-951772

PATIENT
  Age: 6 Decade
  Sex: Female

DRUGS (4)
  1. NAB?PACLITAXEL [Suspect]
     Active Substance: PACLITAXEL
     Indication: INVASIVE LOBULAR BREAST CARCINOMA
     Dosage: TRI?WEEKLY, FIRST LINE TREATMENT
     Route: 065
     Dates: end: 201502
  2. ERIBULIN MESYLATE [Suspect]
     Active Substance: ERIBULIN MESYLATE
     Indication: INVASIVE LOBULAR BREAST CARCINOMA
     Dosage: ADMINISTERED ON DAYS 1 AND 8 OF A 21?DAY CYCLE
     Route: 065
  3. ZOLEDRONIC ACID [Suspect]
     Active Substance: ZOLEDRONIC ACID
     Indication: INVASIVE LOBULAR BREAST CARCINOMA
     Dosage: FIRST LINE TREATMENT
     Route: 065
     Dates: end: 201502
  4. FULVESTRANT. [Concomitant]
     Active Substance: FULVESTRANT
     Indication: DISEASE PROGRESSION
     Dosage: SECOND LINE THERAPY
     Route: 065
     Dates: start: 201311

REACTIONS (3)
  - Alopecia [Unknown]
  - Neuropathy peripheral [Unknown]
  - Asthenia [Unknown]
